FAERS Safety Report 13614721 (Version 4)
Quarter: 2019Q4

REPORT INFORMATION
  Report Type: Spontaneous
  Country: US (occurrence: US)
  Receive Date: 20170606
  Receipt Date: 20191224
  Transmission Date: 20200122
  Serious: No
  Sender: FDA-Public Use
  Company Number: US-BIOGEN-2017BI00410559

PATIENT
  Sex: Female

DRUGS (1)
  1. TYSABRI [Suspect]
     Active Substance: NATALIZUMAB
     Indication: MULTIPLE SCLEROSIS
     Route: 065
     Dates: start: 20170317

REACTIONS (6)
  - Uterine leiomyoma [Unknown]
  - Menorrhagia [Unknown]
  - Uterine cyst [Unknown]
  - Fatigue [Unknown]
  - Pain [Unknown]
  - Teeth brittle [Unknown]
